FAERS Safety Report 11164370 (Version 3)
Quarter: 2015Q3

REPORT INFORMATION
  Report Type: Spontaneous
  Country: US (occurrence: US)
  Receive Date: 20150604
  Receipt Date: 20150729
  Transmission Date: 20151125
  Serious: Yes (Other)
  Sender: FDA-Public Use
  Company Number: US-PFIZER INC-2015185191

PATIENT
  Age: 72 Year
  Sex: Female
  Weight: 61 kg

DRUGS (1)
  1. ARTHROTEC [Suspect]
     Active Substance: DICLOFENAC SODIUM\MISOPROSTOL
     Indication: ARTHRITIS
     Dosage: UNK

REACTIONS (2)
  - Melaena [Recovered/Resolved]
  - Gastrointestinal ulcer haemorrhage [Recovered/Resolved]
